FAERS Safety Report 11415869 (Version 2)
Quarter: 2015Q3

REPORT INFORMATION
  Report Type: Spontaneous
  Country: JP (occurrence: JP)
  Receive Date: 20150825
  Receipt Date: 20150921
  Transmission Date: 20151125
  Serious: Yes (Hospitalization, Other)
  Sender: FDA-Public Use
  Company Number: JP-GLAXOSMITHKLINE-JP2015JPN037602

PATIENT
  Age: 41 Year
  Sex: Female

DRUGS (6)
  1. LOXONIN [Suspect]
     Active Substance: LOXOPROFEN SODIUM
     Dosage: UNK
     Route: 065
  2. FAMOTIDINE. [Suspect]
     Active Substance: FAMOTIDINE
     Dosage: UNK
     Route: 065
  3. WARFARIN [Concomitant]
     Active Substance: WARFARIN
     Dosage: UNK
  4. UNKNOWN DRUG [Concomitant]
     Active Substance: UNSPECIFIED INGREDIENT
     Dosage: UNK
     Dates: start: 20110922, end: 20150218
  5. REVOLADE [Suspect]
     Active Substance: ELTROMBOPAG
     Indication: IMMUNE THROMBOCYTOPENIC PURPURA
     Dosage: 37.5 MG, 1D
     Route: 048
     Dates: start: 20150106, end: 20150618
  6. DEPAS [Suspect]
     Active Substance: ETIZOLAM
     Dosage: UNK
     Route: 048

REACTIONS (4)
  - Hydronephrosis [Unknown]
  - Dysarthria [Unknown]
  - Cerebral infarction [Recovering/Resolving]
  - Deep vein thrombosis [Unknown]

NARRATIVE: CASE EVENT DATE: 20150316
